FAERS Safety Report 24693670 (Version 1)
Quarter: 2024Q4

REPORT INFORMATION
  Report Type: Spontaneous
  Country: CH (occurrence: CH)
  Receive Date: 20241204
  Receipt Date: 20241204
  Transmission Date: 20250115
  Serious: No
  Sender: ALKEM
  Company Number: CH-ALKEM LABORATORIES LIMITED-CH-ALKEM-2024-20961

PATIENT
  Age: 11 Year
  Sex: Male
  Weight: 50 kg

DRUGS (4)
  1. VANCOMYCIN [Suspect]
     Active Substance: VANCOMYCIN
     Indication: Peritonitis
     Dosage: UNK (25 MILLIGRAM/LITER IN EACH OF THE FOUR DIALYSATE BAGS, CORRESPONDING TO A TOTAL OF 440 MILLIGRA
     Route: 033
  2. VANCOMYCIN [Suspect]
     Active Substance: VANCOMYCIN
     Dosage: UNK (50 MILLIGRAM/LITER IN EACH DIALYSATE BAG FOR A TOTAL OF 880 MILLIGRAM OVER 10 HOURS (17.6 MILLI
     Route: 033
  3. VANCOMYCIN [Suspect]
     Active Substance: VANCOMYCIN
     Dosage: UNK (15 MILLIGRAM/KILOGRAM WITH A 6-HOURS DIURNAL DWELL PRIOR TO THE NOCTURNAL APD)
     Route: 033
  4. CEFTAZIDIME [Concomitant]
     Active Substance: CEFTAZIDIME
     Indication: Peritonitis
     Dosage: UNK
     Route: 033

REACTIONS (1)
  - Drug level below therapeutic [Unknown]
